FAERS Safety Report 9721079 (Version 2)
Quarter: 2014Q1

REPORT INFORMATION
  Report Type: Spontaneous
  Country: US (occurrence: US)
  Receive Date: 20131129
  Receipt Date: 20140124
  Transmission Date: 20141002
  Serious: No
  Sender: FDA-Public Use
  Company Number: US-PFIZER INC-2013337977

PATIENT
  Age: 65 Year
  Sex: Female

DRUGS (4)
  1. CAMPTOSAR [Suspect]
     Indication: PANCREATIC CARCINOMA
     Dosage: 180 MG/M2, Q2 WEEKS
     Route: 042
     Dates: start: 20131029
  2. OXALIPLATIN [Concomitant]
     Indication: PANCREATIC CARCINOMA
     Dosage: 85 MG/M2, Q2 WEEKS
     Dates: start: 20131029
  3. 5-FU [Concomitant]
     Indication: PANCREATIC CARCINOMA
     Dosage: 2400 MG/M2, OVER 48 HOURS Q2 WEEKS
     Dates: start: 20131029
  4. LEUCOVORIN [Concomitant]
     Indication: PANCREATIC CARCINOMA
     Dosage: 400 MG/M2, Q 2 WEEKS
     Dates: start: 20131029

REACTIONS (1)
  - Dysarthria [Recovered/Resolved]
